FAERS Safety Report 8997243 (Version 2)
Quarter: 2013Q1

REPORT INFORMATION
  Report Type: Spontaneous
  Country: US (occurrence: US)
  Receive Date: 20130104
  Receipt Date: 20130108
  Transmission Date: 20140127
  Serious: No
  Sender: FDA-Public Use
  Company Number: US-PFIZER INC-2013002989

PATIENT
  Age: 59 Year
  Sex: Female
  Weight: 156.46 kg

DRUGS (3)
  1. LYRICA [Suspect]
     Indication: PAIN
     Dosage: 75 MG, 2X/DAY
     Route: 048
     Dates: start: 201210, end: 2012
  2. LYRICA [Suspect]
     Dosage: 150 MG, 2X/DAY (TWO 75MG CAPSULES IN THE MORNING AND TWO 75MG CAPSULES AT NIGHT)
     Route: 048
     Dates: start: 2012, end: 201211
  3. TRAMADOL [Concomitant]
     Indication: PAIN
     Dosage: UNK, AS NEEDED

REACTIONS (2)
  - Drug ineffective [Unknown]
  - Oedema peripheral [Unknown]
